FAERS Safety Report 14238662 (Version 2)
Quarter: 2018Q1

REPORT INFORMATION
  Report Type: Report from Study
  Country: ES (occurrence: ES)
  Receive Date: 20171130
  Receipt Date: 20180122
  Transmission Date: 20180508
  Serious: Yes (Hospitalization)
  Sender: FDA-Public Use
  Company Number: ES-JNJFOC-20171129251

PATIENT
  Age: 55 Year
  Sex: Female

DRUGS (3)
  1. CALCIFEDIOL [Concomitant]
     Active Substance: CALCIFEDIOL
     Indication: OSTEOPOROSIS
     Route: 065
  2. COMBIVIR [Concomitant]
     Active Substance: LAMIVUDINE\ZIDOVUDINE
     Indication: HIV INFECTION
     Route: 065
     Dates: start: 200911
  3. REZOLSTA [Suspect]
     Active Substance: COBICISTAT\DARUNAVIR ETHANOLATE
     Indication: HIV INFECTION
     Route: 048
     Dates: start: 20160204

REACTIONS (1)
  - Renal colic [Recovered/Resolved]

NARRATIVE: CASE EVENT DATE: 20160502
